FAERS Safety Report 6763732-6 (Version None)
Quarter: 2010Q2

REPORT INFORMATION
  Report Type: 
  Country: None (occurrence: None)
  Receive Date: 20100610
  Receipt Date: 20100602
  Transmission Date: 20101027
  Serious: Yes (Death, Other)
  Sender: FDA-Public Use
  Company Number: PHHY2010DE36900

PATIENT
  Sex: Female

DRUGS (1)
  1. AFINITOR [Suspect]
     Indication: INSULINOMA
     Dosage: 10MG/DAY

REACTIONS (2)
  - BLOOD CREATININE INCREASED [None]
  - DEATH [None]
